FAERS Safety Report 7070182-4 (Version None)
Quarter: 2010Q4

REPORT INFORMATION
  Report Type: 
  Country: None (occurrence: None)
  Receive Date: 20101028
  Receipt Date: 20100910
  Transmission Date: 20110411
  Serious: No
  Sender: FDA-Public Use
  Company Number: US-WYE-H17502710

PATIENT
  Age: 44 Year
  Sex: Male
  Weight: 90.8 kg

DRUGS (2)
  1. ADVIL [Suspect]
     Indication: PAIN
     Dosage: TWO TABLETS THREE TIMES PER DAY STARTED YEARS AGO
     Route: 048
  2. ALCOHOL [Suspect]

REACTIONS (4)
  - ABDOMINAL PAIN UPPER [None]
  - DIARRHOEA [None]
  - HAEMATOCHEZIA [None]
  - PRODUCT LABEL ISSUE [None]
